FAERS Safety Report 6183925-9 (Version None)
Quarter: 2009Q2

REPORT INFORMATION
  Report Type: 
  Country: None (occurrence: None)
  Receive Date: 20090508
  Receipt Date: 20090422
  Transmission Date: 20091009
  Serious: Yes (Other)
  Sender: FDA-Public Use
  Company Number: CA-CELGENEUS-028-20484-09050329

PATIENT
  Sex: Female

DRUGS (6)
  1. INNOHEP [Suspect]
     Dosage: IU/ ML
     Route: 058
     Dates: start: 20040113, end: 20040113
  2. ERYTHROMYCIN [Concomitant]
     Indication: INFECTION PROPHYLAXIS
     Route: 065
     Dates: start: 20040103, end: 20040123
  3. AMOXICILLIN [Concomitant]
     Indication: INFECTION PROPHYLAXIS
     Route: 065
     Dates: start: 20040103, end: 20040123
  4. ATASOL [Concomitant]
     Indication: PAIN
     Route: 048
     Dates: start: 20040103, end: 20040123
  5. GRAVOL TAB [Concomitant]
     Indication: NAUSEA
     Route: 065
     Dates: start: 20040103, end: 20040123
  6. HEPARIN [Concomitant]
     Indication: PROPHYLAXIS
     Dosage: IU
     Route: 065
     Dates: start: 20040103, end: 20040123

REACTIONS (2)
  - DRUG EXPOSURE DURING PREGNANCY [None]
  - PREMATURE LABOUR [None]
